FAERS Safety Report 24615567 (Version 1)
Quarter: 2024Q4

REPORT INFORMATION
  Report Type: Spontaneous
  Country: US (occurrence: US)
  Receive Date: 20241113
  Receipt Date: 20241113
  Transmission Date: 20250114
  Serious: No
  Sender: SANOFI AVENTIS
  Company Number: US-SA-2024SA325394

PATIENT
  Sex: Male
  Weight: 68.18 kg

DRUGS (18)
  1. DUPIXENT [Suspect]
     Active Substance: DUPILUMAB
     Indication: Asthma
     Dosage: 300 MG, QOW
     Route: 058
  2. YUPELRI [Concomitant]
     Active Substance: REVEFENACIN
  3. FAMOTIDINE [Concomitant]
     Active Substance: FAMOTIDINE
  4. PULMICORT TURBUHALER [Concomitant]
     Active Substance: BUDESONIDE
  5. LEVOCETIRIZINE DIHYDROCHLORIDE [Concomitant]
     Active Substance: LEVOCETIRIZINE DIHYDROCHLORIDE
  6. ALPRAZOLAM [Concomitant]
     Active Substance: ALPRAZOLAM
  7. VIAGRA [Concomitant]
     Active Substance: SILDENAFIL CITRATE
  8. AMBIEN [Concomitant]
     Active Substance: ZOLPIDEM TARTRATE
  9. REPATHA [Concomitant]
     Active Substance: EVOLOCUMAB
  10. DEXILANT [Concomitant]
     Active Substance: DEXLANSOPRAZOLE
  11. PERFOROMIST [Concomitant]
     Active Substance: FORMOTEROL FUMARATE DIHYDRATE
  12. VITAMIN D NOS [Concomitant]
     Active Substance: CHOLECALCIFEROL\ERGOCALCIFEROL
  13. CYANOCOBALAMIN [Concomitant]
     Active Substance: CYANOCOBALAMIN
  14. ALBUTEROL SULFATE [Concomitant]
     Active Substance: ALBUTEROL SULFATE
  15. LEVALBUTEROL TARTRATE [Concomitant]
     Active Substance: LEVALBUTEROL TARTRATE
  16. ALBUTEROL\IPRATROPIUM [Concomitant]
     Active Substance: ALBUTEROL\IPRATROPIUM
  17. LYRICA [Concomitant]
     Active Substance: PREGABALIN
  18. METHOTREXATE [Concomitant]
     Active Substance: METHOTREXATE

REACTIONS (1)
  - Dyspnoea [Unknown]
